FAERS Safety Report 24647683 (Version 1)
Quarter: 2024Q4

REPORT INFORMATION
  Report Type: Spontaneous
  Country: US (occurrence: US)
  Receive Date: 20241121
  Receipt Date: 20241121
  Transmission Date: 20250115
  Serious: No
  Sender: PFIZER
  Company Number: US-PFIZER INC-202400303356

PATIENT
  Age: 42 Year
  Sex: Female
  Weight: 60.5 kg

DRUGS (1)
  1. ADCETRIS [Suspect]
     Active Substance: BRENTUXIMAB VEDOTIN
     Dosage: 100 MG, EVERY 3 WEEKS
     Route: 042

REACTIONS (1)
  - Weight decreased [Unknown]
